FAERS Safety Report 24840211 (Version 1)
Quarter: 2025Q1

REPORT INFORMATION
  Report Type: Spontaneous
  Country: US (occurrence: None)
  Receive Date: 20250113
  Receipt Date: 20250113
  Transmission Date: 20250408
  Serious: Yes (Death)
  Sender: FDA-CTU
  Company Number: None

PATIENT
  Sex: Female
  Weight: 95.85 kg

DRUGS (7)
  1. CYCLOPHOSPHAMIDE [Suspect]
     Active Substance: CYCLOPHOSPHAMIDE
     Indication: Ovarian cancer
     Dosage: FREQUENCY : DAILY;?
     Route: 048
     Dates: start: 20240624, end: 20241120
  2. Dicyclomine 20mg [Concomitant]
     Dates: start: 20230608, end: 20250109
  3. OMEPRAZOLE [Concomitant]
     Active Substance: OMEPRAZOLE
     Dates: start: 20230608, end: 20250109
  4. LISINOPRIL [Concomitant]
     Active Substance: LISINOPRIL
     Dates: start: 20230608, end: 20250109
  5. BUPROPION [Concomitant]
     Active Substance: BUPROPION
     Dates: start: 20240327, end: 20250109
  6. OXYCODONE [Concomitant]
     Active Substance: OXYCODONE
     Dates: start: 20240805, end: 20250109
  7. TRAMADOL [Concomitant]
     Active Substance: TRAMADOL
     Dates: start: 20240626, end: 20240808

REACTIONS (1)
  - Death [None]
